FAERS Safety Report 10885135 (Version 1)
Quarter: 2015Q1

REPORT INFORMATION
  Report Type: Spontaneous
  Country: DK (occurrence: CH)
  Receive Date: 20150304
  Receipt Date: 20150304
  Transmission Date: 20150721
  Serious: Yes (Hospitalization)
  Sender: FDA-Public Use
  Company Number: CH-FRI-1000074919

PATIENT
  Age: 74 Year
  Sex: Male
  Weight: 68.8 kg

DRUGS (17)
  1. ESCITALOPRAM [Suspect]
     Active Substance: ESCITALOPRAM OXALATE
     Indication: DEPRESSION
     Dosage: 5 MG
     Route: 048
     Dates: start: 20141217, end: 20141224
  2. AUGMENTIN [Concomitant]
     Active Substance: AMOXICILLIN\CLAVULANATE POTASSIUM
     Indication: PNEUMONIA
     Dosage: 3.6 GRAM
     Route: 042
     Dates: start: 20141209, end: 20141211
  3. PREDNISONE LABATEC [Concomitant]
     Indication: POLYMYALGIA RHEUMATICA
     Dosage: 20 MG
     Route: 048
     Dates: start: 20150106
  4. ENALAPRIL ACTAVIS [Concomitant]
     Active Substance: ENALAPRIL
     Indication: ESSENTIAL HYPERTENSION
     Dosage: 20 MG
     Route: 048
     Dates: start: 20141209, end: 20141223
  5. AMOXICILLIN AND CLAVULANATE POTASSIUM [Concomitant]
     Active Substance: AMOXICILLIN\CLAVULANATE POTASSIUM
     Indication: PRODUCT USED FOR UNKNOWN INDICATION
     Dosage: 3.9 GRAM
     Route: 065
     Dates: start: 20141209
  6. TIENAM [Concomitant]
     Active Substance: CILASTATIN SODIUM\IMIPENEM
     Indication: PRODUCT USED FOR UNKNOWN INDICATION
     Route: 065
     Dates: start: 20150103, end: 20150109
  7. NEXIUM [Concomitant]
     Active Substance: ESOMEPRAZOLE MAGNESIUM
     Indication: DYSPEPSIA
     Dosage: 40 MG
     Route: 048
     Dates: start: 20141209
  8. PARACETAMOL [Concomitant]
     Active Substance: ACETAMINOPHEN
     Indication: PYREXIA
     Dosage: 3 GRAM
  9. TOLVON [Suspect]
     Active Substance: MIANSERIN
     Indication: DEPRESSION
     Dosage: 15 MG
     Route: 048
     Dates: start: 20150128
  10. TAZOBAC [Concomitant]
     Active Substance: PIPERACILLIN SODIUM\TAZOBACTAM SODIUM
     Indication: PNEUMONIA
     Dosage: 13.5 GRAM
     Route: 042
     Dates: start: 20141212, end: 20141215
  11. TIENAM [Concomitant]
     Active Substance: CILASTATIN SODIUM\IMIPENEM
     Indication: THROMBOCYTOPENIA
     Dosage: 2000 MG
     Route: 065
     Dates: start: 20150103, end: 20150109
  12. CLEXANE [Concomitant]
     Active Substance: ENOXAPARIN SODIUM
     Indication: THROMBOSIS PROPHYLAXIS
     Dosage: 40 MG
     Route: 048
     Dates: start: 20141211
  13. ESCITALOPRAM [Suspect]
     Active Substance: ESCITALOPRAM OXALATE
     Dosage: 10 MG
     Route: 048
     Dates: start: 20150109, end: 20150115
  14. DALFALGAN [Concomitant]
     Indication: PRODUCT USED FOR UNKNOWN INDICATION
     Dosage: 3 GRAM
     Route: 048
     Dates: start: 20141209
  15. MORPHINE [Concomitant]
     Active Substance: MORPHINE
     Indication: PAIN
     Dosage: 8 MG
     Route: 058
     Dates: start: 20150107
  16. PARACETAMOL [Concomitant]
     Active Substance: ACETAMINOPHEN
     Dosage: 1 GRAM
     Dates: start: 20141231
  17. TAVANIC [Concomitant]
     Active Substance: LEVOFLOXACIN
     Indication: THROMBOCYTOPENIA
     Dosage: 500 MG
     Route: 048
     Dates: start: 20150102, end: 20150102

REACTIONS (6)
  - Respiratory syncytial virus test positive [None]
  - Thrombocytopenia [None]
  - Hiccups [Not Recovered/Not Resolved]
  - Laboratory test interference [None]
  - Polymyalgia rheumatica [None]
  - Pyrexia [Not Recovered/Not Resolved]

NARRATIVE: CASE EVENT DATE: 20141224
